FAERS Safety Report 8191374-7 (Version None)
Quarter: 2012Q1

REPORT INFORMATION
  Report Type: 
  Country: None (occurrence: None)
  Receive Date: 20120307
  Receipt Date: 20120227
  Transmission Date: 20120608
  Serious: Yes (Hospitalization)
  Sender: FDA-Public Use
  Company Number: FR-ASTRAZENECA-2012SE14313

PATIENT
  Age: 64 Year
  Sex: Female

DRUGS (9)
  1. TENORETIC 100 [Interacting]
     Indication: HYPERTENSION
     Route: 048
     Dates: start: 20100101, end: 20111205
  2. AMLODIPINE BESYLATE [Concomitant]
     Route: 048
  3. INDAPAMIDE [Interacting]
     Indication: HYPERTENSION
     Route: 048
     Dates: start: 20100101, end: 20111205
  4. OXAZEPAM [Concomitant]
     Route: 048
  5. FENOFIBRATE [Concomitant]
     Route: 048
  6. ACARBOSE [Suspect]
     Indication: DIABETES MELLITUS
     Route: 048
     Dates: end: 20111207
  7. ASPIRIN [Concomitant]
     Route: 048
  8. TENORMIN [Concomitant]
     Indication: HYPERTENSION
     Route: 048
  9. GLUCOPHAGE [Concomitant]
     Indication: DIABETES MELLITUS
     Route: 048

REACTIONS (4)
  - DRUG INTERACTION [None]
  - HYPONATRAEMIA [None]
  - HYPOCHLORAEMIA [None]
  - HYPOKALAEMIA [None]
